FAERS Safety Report 18724345 (Version 2)
Quarter: 2021Q1

REPORT INFORMATION
  Report Type: Spontaneous
  Country: US (occurrence: US)
  Receive Date: 20210111
  Receipt Date: 20210125
  Transmission Date: 20210419
  Serious: No
  Sender: FDA-Public Use
  Company Number: US-PFIZER INC-2021007974

PATIENT
  Age: 62 Year
  Sex: Female

DRUGS (1)
  1. ADVIL [Suspect]
     Active Substance: IBUPROFEN
     Dosage: 2 DF
     Dates: start: 20201225

REACTIONS (3)
  - Hepatic pain [Unknown]
  - Pain [Unknown]
  - Liver disorder [Unknown]
